FAERS Safety Report 7518645-9 (Version None)
Quarter: 2011Q2

REPORT INFORMATION
  Report Type: 
  Country: None (occurrence: None)
  Receive Date: 20110512
  Receipt Date: 20110328
  Transmission Date: 20111010
  Serious: No
  Sender: FDA-Public Use
  Company Number: 1000019586

PATIENT
  Age: 69 Year
  Sex: Female

DRUGS (10)
  1. ASACOL (MESALAZINE) (MESALAZINE) [Concomitant]
  2. CLARITIN-D (LORATADINE, PSEUDOEPHEDRINE) (LORATADINE, PSEUDOEPHEDRINE) [Concomitant]
  3. SAVELLA [Suspect]
     Indication: FIBROMYALGIA
     Dosage: SEE IMAGE
     Route: 048
     Dates: start: 20110317, end: 20110317
  4. SAVELLA [Suspect]
     Indication: FIBROMYALGIA
     Dosage: SEE IMAGE
     Route: 048
     Dates: start: 20110320, end: 20110320
  5. SAVELLA [Suspect]
     Indication: FIBROMYALGIA
     Dosage: SEE IMAGE
     Route: 048
     Dates: start: 20110326
  6. SAVELLA [Suspect]
     Indication: FIBROMYALGIA
     Dosage: SEE IMAGE
     Route: 048
     Dates: start: 20110318, end: 20110319
  7. SAVELLA [Suspect]
     Indication: FIBROMYALGIA
     Dosage: SEE IMAGE
     Route: 048
     Dates: start: 20110321
  8. HYDROCHLOROTHIAZIDE [Suspect]
     Indication: HYPERTENSION
  9. SYNTHROID (LEVOTHYROXINE SODIUM) (LEVOTHYROXINE SODIUM) [Concomitant]
  10. VITAMIN D (VITAMIN D ) (VITAMIN D) [Concomitant]

REACTIONS (5)
  - BALANCE DISORDER [None]
  - FATIGUE [None]
  - LETHARGY [None]
  - VISION BLURRED [None]
  - MENTAL IMPAIRMENT [None]
